FAERS Safety Report 22952009 (Version 2)
Quarter: 2023Q4

REPORT INFORMATION
  Report Type: Report from Study
  Country: US (occurrence: US)
  Receive Date: 20230918
  Receipt Date: 20231026
  Transmission Date: 20240110
  Serious: Yes (Hospitalization, Other)
  Sender: FDA-Public Use
  Company Number: US-UCBSA-2023045100

PATIENT
  Sex: Female

DRUGS (1)
  1. CERTOLIZUMAB PEGOL [Suspect]
     Active Substance: CERTOLIZUMAB PEGOL
     Indication: Psoriatic arthropathy
     Dosage: 400 MILLIGRAM, EV 2 WEEKS(QOW)
     Route: 058
     Dates: start: 20230815, end: 20230829

REACTIONS (4)
  - Acute left ventricular failure [Not Recovered/Not Resolved]
  - Nasopharyngitis [Recovered/Resolved]
  - COVID-19 [Not Recovered/Not Resolved]
  - Fear of injection [Not Recovered/Not Resolved]

NARRATIVE: CASE EVENT DATE: 20230101
